FAERS Safety Report 5919264-8 (Version None)
Quarter: 2008Q4

REPORT INFORMATION
  Report Type: 
  Country: None (occurrence: None)
  Receive Date: 20081014
  Receipt Date: 20081014
  Transmission Date: 20090506
  Serious: Yes (Hospitalization, Disabling, Other)
  Sender: FDA-Public Use
  Company Number: None

PATIENT
  Sex: Male
  Weight: 77.1115 kg

DRUGS (2)
  1. ZYPREXA [Suspect]
     Indication: BIPOLAR DISORDER
     Dosage: 5MG - 15MG ONCE EACH DAY PO
     Route: 048
     Dates: start: 19960101, end: 20070101
  2. VALPROATE SODIUM [Suspect]
     Indication: BIPOLAR DISORDER
     Dosage: 100MG - 3750MG TWICH EACH DAY PO
     Route: 048
     Dates: start: 19970101, end: 20070101

REACTIONS (8)
  - BLOOD GLUCOSE ABNORMAL [None]
  - DYSKINESIA [None]
  - HEART RATE DECREASED [None]
  - MUSCLE DISORDER [None]
  - NERVOUS SYSTEM DISORDER [None]
  - RAPID EYE MOVEMENTS SLEEP ABNORMAL [None]
  - SENSORY DISTURBANCE [None]
  - TREMOR [None]
